FAERS Safety Report 19587721 (Version 2)
Quarter: 2021Q3

REPORT INFORMATION
  Report Type: Report from Study
  Country: TW (occurrence: TW)
  Receive Date: 20210721
  Receipt Date: 20210928
  Transmission Date: 20211014
  Serious: Yes (Death)
  Sender: FDA-Public Use
  Company Number: TW-INCYTE CORPORATION-2021IN006198

PATIENT

DRUGS (2)
  1. JAKAVI [Suspect]
     Active Substance: RUXOLITINIB
     Indication: MYELOFIBROSIS
     Dosage: 20 MG
     Route: 048
     Dates: start: 20180607, end: 20180830
  2. JAKAVI [Suspect]
     Active Substance: RUXOLITINIB
     Dosage: 30 MG
     Route: 048
     Dates: start: 20180830, end: 20181011

REACTIONS (2)
  - Pneumonia [Fatal]
  - Periorbital cellulitis [Fatal]

NARRATIVE: CASE EVENT DATE: 20181011
